FAERS Safety Report 7634760-3 (Version None)
Quarter: 2011Q3

REPORT INFORMATION
  Report Type: 
  Country: None (occurrence: None)
  Receive Date: 20110726
  Receipt Date: 20110715
  Transmission Date: 20111222
  Serious: No
  Sender: FDA-Public Use
  Company Number: US-BIOGENIDEC-2010BI008528

PATIENT
  Age: 46 Year
  Sex: Male

DRUGS (3)
  1. VITAMIN TAB [Concomitant]
     Indication: BLOOD TESTOSTERONE DECREASED
  2. MEDICATION (NOS) [Concomitant]
     Indication: BLOOD TESTOSTERONE DECREASED
  3. TYSABRI [Suspect]
     Indication: MULTIPLE SCLEROSIS
     Route: 042
     Dates: start: 20080814

REACTIONS (6)
  - DIZZINESS [None]
  - FEELING DRUNK [None]
  - AMNESIA [None]
  - APHASIA [None]
  - VISUAL IMPAIRMENT [None]
  - MUSCULOSKELETAL PAIN [None]
